FAERS Safety Report 9210024 (Version 4)
Quarter: 2014Q1

REPORT INFORMATION
  Report Type: Report from Study
  Country: CA (occurrence: CA)
  Receive Date: 20120903
  Receipt Date: 20140117
  Transmission Date: 20141002
  Serious: Yes (Hospitalization, Other)
  Sender: FDA-Public Use
  Company Number: PHHY2012CA075695

PATIENT
  Age: 66 Year
  Sex: Female

DRUGS (1)
  1. ACLASTA [Suspect]
     Indication: OSTEOPOROSIS
     Dosage: UNK UKN, UNK
     Route: 042
     Dates: start: 20111019

REACTIONS (10)
  - Back disorder [Unknown]
  - Chronic obstructive pulmonary disease [Recovered/Resolved]
  - Pyrexia [Unknown]
  - Dyspnoea [Unknown]
  - Dislocation of vertebra [Unknown]
  - Gait disturbance [Unknown]
  - Spinal osteoarthritis [Not Recovered/Not Resolved]
  - Spinal column stenosis [Not Recovered/Not Resolved]
  - Infection [Recovered/Resolved]
  - Fall [Unknown]
